FAERS Safety Report 19767492 (Version 1)
Quarter: 2021Q3

REPORT INFORMATION
  Report Type: Spontaneous
  Country: US (occurrence: US)
  Receive Date: 20210830
  Receipt Date: 20210830
  Transmission Date: 20211014
  Serious: Yes (Hospitalization)
  Sender: FDA-Public Use
  Company Number: None

PATIENT
  Age: 53 Year
  Sex: Female

DRUGS (17)
  1. KEPPRA [Concomitant]
     Active Substance: LEVETIRACETAM
  2. TOPIRAMATE. [Concomitant]
     Active Substance: TOPIRAMATE
  3. HYDROXYZ HCL [Concomitant]
     Active Substance: HYDROXYZINE HYDROCHLORIDE
  4. VITAMIN D3 [Concomitant]
     Active Substance: CHOLECALCIFEROL
  5. XELODA [Concomitant]
     Active Substance: CAPECITABINE
  6. LORAZEPAM. [Concomitant]
     Active Substance: LORAZEPAM
  7. CALCIUM/VIT D [Concomitant]
  8. TYKERB [Concomitant]
     Active Substance: LAPATINIB DITOSYLATE
  9. LAPATINIB [Suspect]
     Active Substance: LAPATINIB
     Indication: BREAST CANCER
     Route: 048
     Dates: start: 20201102
  10. ALENDRONATE [Concomitant]
     Active Substance: ALENDRONATE SODIUM
  11. HYDROCHLOROT [Concomitant]
     Active Substance: HYDROCHLOROTHIAZIDE
  12. LEVOTHYROXIN [Concomitant]
     Active Substance: LEVOTHYROXINE
  13. ATORVASTATIN [Concomitant]
     Active Substance: ATORVASTATIN
  14. AZITHROMYCIN ANHYDROUS. [Concomitant]
     Active Substance: AZITHROMYCIN ANHYDROUS
  15. LEVETIRACETA [Concomitant]
     Active Substance: LEVETIRACETAM
  16. MOMETASONE [Concomitant]
     Active Substance: MOMETASONE
  17. OYST SHELL/D [Concomitant]

REACTIONS (2)
  - Nasopharyngitis [None]
  - Seizure [None]
